FAERS Safety Report 11274862 (Version 2)
Quarter: 2015Q3

REPORT INFORMATION
  Report Type: Report from Study
  Country: US (occurrence: US)
  Receive Date: 20150716
  Receipt Date: 20150728
  Transmission Date: 20151125
  Serious: Yes (Other)
  Sender: FDA-Public Use
  Company Number: PHEH2015US012853

PATIENT
  Sex: Female
  Weight: 88.25 kg

DRUGS (3)
  1. XANAX [Concomitant]
     Active Substance: ALPRAZOLAM
     Dosage: 1 MG, BID
     Route: 065
  2. XANAX [Concomitant]
     Active Substance: ALPRAZOLAM
     Indication: ANXIETY
     Dosage: 1 MG, QHS OCCASIONALLY
     Route: 065
  3. GILENYA [Suspect]
     Active Substance: FINGOLIMOD HYDROCHLORIDE
     Indication: MULTIPLE SCLEROSIS
     Dosage: 0.5 MG, QD
     Route: 048
     Dates: start: 20110727

REACTIONS (16)
  - Muscle spasticity [Unknown]
  - Restless legs syndrome [Unknown]
  - Gait disturbance [Unknown]
  - Optic atrophy [Unknown]
  - Anxiety [Unknown]
  - Pain in extremity [Unknown]
  - Dysaesthesia [Unknown]
  - Anaemia [Unknown]
  - Tension headache [Unknown]
  - Hypoaesthesia [Unknown]
  - Burning sensation [Unknown]
  - Constipation [Unknown]
  - Paraesthesia [Unknown]
  - Middle insomnia [Unknown]
  - Nervous system disorder [Unknown]
  - Drug intolerance [Unknown]
